FAERS Safety Report 12930834 (Version 1)
Quarter: 2016Q4

REPORT INFORMATION
  Report Type: Report from Study
  Country: JP (occurrence: JP)
  Receive Date: 20161110
  Receipt Date: 20161110
  Transmission Date: 20170207
  Serious: Yes (Hospitalization)
  Sender: FDA-Public Use
  Company Number: JP-JNJFOC-20161105271

PATIENT
  Age: 51 Year
  Sex: Male

DRUGS (1)
  1. YONDELIS [Suspect]
     Active Substance: TRABECTEDIN
     Indication: EXTRASKELETAL MYXOID CHONDROSARCOMA
     Dosage: 2.6 MG/BODY, CYCLE 1
     Route: 042
     Dates: start: 20160906

REACTIONS (2)
  - Blood creatine phosphokinase increased [Unknown]
  - Oedema [Unknown]

NARRATIVE: CASE EVENT DATE: 201610
